FAERS Safety Report 7721714-1 (Version None)
Quarter: 2011Q3

REPORT INFORMATION
  Report Type: 
  Country: None (occurrence: None)
  Receive Date: 20110831
  Receipt Date: 20110823
  Transmission Date: 20111222
  Serious: Yes (Other)
  Sender: FDA-Public Use
  Company Number: JP-GLAXOSMITHKLINE-B0742453A

PATIENT
  Age: 38 Year
  Sex: Female

DRUGS (4)
  1. UNKNOWN DRUG [Suspect]
     Indication: PRODUCT USED FOR UNKNOWN INDICATION
  2. ZOVIRAX [Suspect]
     Indication: PRODUCT USED FOR UNKNOWN INDICATION
     Dosage: 250MG PER DAY
     Route: 042
     Dates: start: 20100601, end: 20100601
  3. UNKNOWN DRUG [Suspect]
  4. UNKNOWN DRUG [Suspect]

REACTIONS (1)
  - TOXIC EPIDERMAL NECROLYSIS [None]
